FAERS Safety Report 19749388 (Version 1)
Quarter: 2021Q3

REPORT INFORMATION
  Report Type: Spontaneous
  Country: NL (occurrence: NL)
  Receive Date: 20210826
  Receipt Date: 20210826
  Transmission Date: 20211014
  Serious: Yes (Congenital Anomaly, Other)
  Sender: FDA-Public Use
  Company Number: NL-AUROBINDO-AUR-APL-2021-035779

PATIENT
  Sex: Male
  Weight: 2.5 kg

DRUGS (2)
  1. CITALOPRAM 20 MG FILM COATED TABLETS [Suspect]
     Active Substance: CITALOPRAM HYDROBROMIDE
     Indication: DEPRESSION
     Dosage: 1 D 15 MG
     Route: 064
  2. CITALOPRAM 20 MG FILM COATED TABLETS [Suspect]
     Active Substance: CITALOPRAM HYDROBROMIDE
     Indication: ANXIETY

REACTIONS (2)
  - Ventricular septal defect [Unknown]
  - Maternal exposure during pregnancy [Unknown]

NARRATIVE: CASE EVENT DATE: 20210520
